FAERS Safety Report 18158601 (Version 2)
Quarter: 2020Q4

REPORT INFORMATION
  Report Type: Spontaneous
  Country: US (occurrence: US)
  Receive Date: 20200817
  Receipt Date: 20201027
  Transmission Date: 20210113
  Serious: Yes (Other)
  Sender: FDA-Public Use
  Company Number: US-GILEAD-2020-0489319

PATIENT
  Sex: Male
  Weight: 74.38 kg

DRUGS (61)
  1. TRUVADA [Suspect]
     Active Substance: EMTRICITABINE\TENOFOVIR DISOPROXIL FUMARATE
     Indication: PRODUCT USED FOR UNKNOWN INDICATION
     Dosage: UNK
     Route: 048
     Dates: start: 2011
  2. CETIRIZINE [Concomitant]
     Active Substance: CETIRIZINE HYDROCHLORIDE
  3. CLINDAMYCIN. [Concomitant]
     Active Substance: CLINDAMYCIN
  4. DICLOFENAC [Concomitant]
     Active Substance: DICLOFENAC
  5. LEVOFLOXACIN. [Concomitant]
     Active Substance: LEVOFLOXACIN
  6. LUNESTA [Concomitant]
     Active Substance: ESZOPICLONE
  7. TRUVADA [Suspect]
     Active Substance: EMTRICITABINE\TENOFOVIR DISOPROXIL FUMARATE
     Dosage: UNK
     Route: 065
     Dates: start: 20151013, end: 20151124
  8. TRIUMEQ [Concomitant]
     Active Substance: ABACAVIR SULFATE\DOLUTEGRAVIR SODIUM\LAMIVUDINE
  9. ALPRAZOLAM. [Concomitant]
     Active Substance: ALPRAZOLAM
  10. HYDROCODONE/ACETAMINOPHEN [Concomitant]
     Active Substance: ACETAMINOPHEN\HYDROCODONE
  11. PAROXETINE. [Concomitant]
     Active Substance: PAROXETINE
  12. VITAMIN D [VITAMIN D NOS] [Concomitant]
     Active Substance: VITAMIN D NOS
  13. NORVIR [Concomitant]
     Active Substance: RITONAVIR
  14. ASPIRIN [ACETYLSALICYLIC ACID] [Concomitant]
     Active Substance: ASPIRIN
  15. CIALIS [Concomitant]
     Active Substance: TADALAFIL
  16. ERYTHROMYCIN. [Concomitant]
     Active Substance: ERYTHROMYCIN
  17. FLUTICASONE. [Concomitant]
     Active Substance: FLUTICASONE
  18. GABAPENTIN. [Concomitant]
     Active Substance: GABAPENTIN
  19. LYRICA [Concomitant]
     Active Substance: PREGABALIN
  20. MELOXICAM. [Concomitant]
     Active Substance: MELOXICAM
  21. METFORMIN [Concomitant]
     Active Substance: METFORMIN HYDROCHLORIDE
  22. ONE-A-DAY MEN^S [Concomitant]
  23. TESTOSTERONE. [Concomitant]
     Active Substance: TESTOSTERONE
  24. ZALEPLON. [Concomitant]
     Active Substance: ZALEPLON
  25. ZOLPIDEM [Concomitant]
     Active Substance: ZOLPIDEM TARTRATE
  26. TRUVADA [Suspect]
     Active Substance: EMTRICITABINE\TENOFOVIR DISOPROXIL FUMARATE
     Dosage: UNK
     Route: 065
     Dates: start: 20100817, end: 20110827
  27. CIPROFLOXACIN. [Concomitant]
     Active Substance: CIPROFLOXACIN
  28. ENALAPRIL [Concomitant]
     Active Substance: ENALAPRIL
  29. NEXIUM I.V. [Concomitant]
     Active Substance: ESOMEPRAZOLE SODIUM
  30. TAMSULOSIN [Concomitant]
     Active Substance: TAMSULOSIN
  31. AMOXICILLIN. [Concomitant]
     Active Substance: AMOXICILLIN
  32. ARIPIPRAZOLE. [Concomitant]
     Active Substance: ARIPIPRAZOLE
  33. AZITHROMYCIN ANHYDROUS. [Concomitant]
     Active Substance: AZITHROMYCIN ANHYDROUS
  34. CYCLOBENZAPRINE. [Concomitant]
     Active Substance: CYCLOBENZAPRINE
  35. HYDROCODONE [Concomitant]
     Active Substance: HYDROCODONE
  36. HYDROCODONE BITARTRATE AND ACETAMINOPHEN [Concomitant]
     Active Substance: ACETAMINOPHEN\HYDROCODONE BITARTRATE
  37. TRUVADA [Suspect]
     Active Substance: EMTRICITABINE\TENOFOVIR DISOPROXIL FUMARATE
     Dosage: UNK
     Route: 065
     Dates: start: 20121214, end: 20130821
  38. PREZISTA [Concomitant]
     Active Substance: DARUNAVIR ETHANOLATE
  39. ATORVASTATIN [Concomitant]
     Active Substance: ATORVASTATIN
  40. BACLOFEN. [Concomitant]
     Active Substance: BACLOFEN
  41. CARISOPRODOL. [Concomitant]
     Active Substance: CARISOPRODOL
  42. CEFUROXIME. [Concomitant]
     Active Substance: CEFUROXIME
  43. EPZICOM [Concomitant]
     Active Substance: ABACAVIR SULFATE\LAMIVUDINE
  44. METHYLPREDNISOLONE. [Concomitant]
     Active Substance: METHYLPREDNISOLONE
  45. PREGABALIN. [Concomitant]
     Active Substance: PREGABALIN
  46. TIZANIDINE. [Concomitant]
     Active Substance: TIZANIDINE
  47. COMBIVIR [Concomitant]
     Active Substance: LAMIVUDINE\ZIDOVUDINE
  48. BECONASE AQ [Concomitant]
     Active Substance: BECLOMETHASONE DIPROPIONATE MONOHYDRATE
  49. DOCUSATE SODIUM. [Concomitant]
     Active Substance: DOCUSATE SODIUM
  50. ESCITALOPRAM [Concomitant]
     Active Substance: ESCITALOPRAM OXALATE
  51. SULFAMETHOXAZOLE [Concomitant]
     Active Substance: SULFAMETHOXAZOLE
  52. TRAZODONE [Concomitant]
     Active Substance: TRAZODONE HYDROCHLORIDE
  53. VIAGRA [Concomitant]
     Active Substance: SILDENAFIL CITRATE
  54. TRUVADA [Suspect]
     Active Substance: EMTRICITABINE\TENOFOVIR DISOPROXIL FUMARATE
     Dosage: UNK
     Route: 065
     Dates: start: 20180223, end: 20180325
  55. ACETAMINOPHEN. [Concomitant]
     Active Substance: ACETAMINOPHEN
  56. DULOXETINE DR [Concomitant]
     Active Substance: DULOXETINE
  57. IBUPROFEN. [Concomitant]
     Active Substance: IBUPROFEN
  58. LIDOCAINE. [Concomitant]
     Active Substance: LIDOCAINE
  59. OXYCODONE AND ACETAMINOPHEN [Concomitant]
     Active Substance: ACETAMINOPHEN\OXYCODONE HYDROCHLORIDE
  60. TRAMADOL. [Concomitant]
     Active Substance: TRAMADOL
  61. TRIAMTERENE. [Concomitant]
     Active Substance: TRIAMTERENE

REACTIONS (6)
  - Emotional distress [Unknown]
  - Anhedonia [Unknown]
  - Chronic kidney disease [Not Recovered/Not Resolved]
  - Pain [Unknown]
  - Anxiety [Not Recovered/Not Resolved]
  - Depression [Not Recovered/Not Resolved]

NARRATIVE: CASE EVENT DATE: 2009
